FAERS Safety Report 9614679 (Version 1)
Quarter: 2013Q4

REPORT INFORMATION
  Report Type: Report from Study
  Country: GB (occurrence: GB)
  Receive Date: 20131011
  Receipt Date: 20131011
  Transmission Date: 20140711
  Serious: Yes (Death, Hospitalization, Other)
  Sender: FDA-Public Use
  Company Number: GB-ROCHE-1287628

PATIENT
  Age: 78 Year
  Sex: Female

DRUGS (2)
  1. RANIBIZUMAB [Suspect]
     Indication: AGE-RELATED MACULAR DEGENERATION
     Route: 050
     Dates: start: 20080213
  2. RANIBIZUMAB [Suspect]
     Route: 050
     Dates: start: 20130304

REACTIONS (2)
  - Renal failure acute [Fatal]
  - Renal failure chronic [Not Recovered/Not Resolved]
